FAERS Safety Report 15993054 (Version 5)
Quarter: 2019Q4

REPORT INFORMATION
  Report Type: Spontaneous
  Country: US (occurrence: US)
  Receive Date: 20190221
  Receipt Date: 20191014
  Transmission Date: 20200122
  Serious: Yes (Other)
  Sender: FDA-Public Use
  Company Number: US-PFIZER INC-2019074007

PATIENT
  Age: 89 Year
  Sex: Female

DRUGS (1)
  1. PREMPRO [Suspect]
     Active Substance: ESTROGENS, CONJUGATED\MEDROXYPROGESTERONE ACETATE
     Indication: OSTEOPOROSIS PROPHYLAXIS
     Dosage: 10 MG, 1X/DAY

REACTIONS (6)
  - Eye contusion [Unknown]
  - Epistaxis [Unknown]
  - Fall [Unknown]
  - Headache [Unknown]
  - Facial bones fracture [Unknown]
  - Spinal stenosis [Unknown]
